FAERS Safety Report 4744320-X (Version None)
Quarter: 2005Q3

REPORT INFORMATION
  Report Type: 
  Country: None (occurrence: None)
  Receive Date: 20050811
  Receipt Date: 20050811
  Transmission Date: 20060218
  Serious: Yes (Other)
  Sender: FDA-Public Use
  Company Number: None

PATIENT
  Age: 47 Year
  Sex: Female
  Weight: 63.5036 kg

DRUGS (1)
  1. LIDOCAINE 1% [Suspect]
     Indication: MOLE EXCISION
     Dosage: INJECTION SUBCUTANEOUS
     Route: 058

REACTIONS (2)
  - NEURALGIA [None]
  - PAIN IN EXTREMITY [None]
